FAERS Safety Report 23979270 (Version 1)
Quarter: 2024Q2

REPORT INFORMATION
  Report Type: Spontaneous
  Country: GB (occurrence: GB)
  Receive Date: 20240615
  Receipt Date: 20240615
  Transmission Date: 20240716
  Serious: Yes (Other)
  Sender: FDA-Public Use
  Company Number: None

PATIENT
  Sex: Female

DRUGS (3)
  1. TOPIRAMATE [Suspect]
     Active Substance: TOPIRAMATE
     Indication: Migraine prophylaxis
  2. AMITRIPTYLINE [Concomitant]
     Active Substance: AMITRIPTYLINE
     Indication: Migraine prophylaxis
  3. SUMATRIPTAN [Concomitant]
     Active Substance: SUMATRIPTAN
     Indication: Migraine

REACTIONS (6)
  - Neuralgia [Unknown]
  - Burning sensation [Unknown]
  - Hypoaesthesia [Recovered/Resolved with Sequelae]
  - Sensory disturbance [Unknown]
  - Neuropathy peripheral [Recovered/Resolved with Sequelae]
  - Paraesthesia [Not Recovered/Not Resolved]
